FAERS Safety Report 7121106-2 (Version None)
Quarter: 2010Q4

REPORT INFORMATION
  Report Type: 
  Country: None (occurrence: None)
  Receive Date: 20101124
  Receipt Date: 20100513
  Transmission Date: 20110411
  Serious: No
  Sender: FDA-Public Use
  Company Number: US-PFIZER INC-2010043577

PATIENT
  Sex: Female
  Weight: 65 kg

DRUGS (10)
  1. TIKOSYN [Suspect]
     Indication: ATRIAL FIBRILLATION
     Dosage: 250 MG, 2X/DAY
     Route: 048
     Dates: start: 20100316
  2. MAGNESIUM [Suspect]
     Indication: MALAISE
     Dosage: UNK
  3. LIPITOR [Concomitant]
     Indication: BLOOD CHOLESTEROL INCREASED
     Dosage: 40 MG, 2X/DAY
     Route: 048
  4. LANTUS [Concomitant]
     Indication: TYPE 2 DIABETES MELLITUS
     Dosage: UNK
  5. ALTACE [Concomitant]
     Indication: HYPERTENSION
     Dosage: 10 MG, 2X/DAY
     Route: 048
  6. ATENOLOL [Concomitant]
     Dosage: 25 MG, 2X/DAY
  7. XOPENEX [Concomitant]
     Indication: ASTHMA
     Dosage: UNK
     Route: 055
  8. ATROVENT [Concomitant]
     Indication: ASTHMA
     Dosage: 2 PUFFS TWICE DAILY
     Route: 055
  9. AZMACORT [Concomitant]
     Indication: ASTHMA
     Dosage: 2 PUFFS TWICE A DAY
     Route: 055
  10. PULMICORT [Concomitant]
     Indication: ASTHMA
     Dosage: TWO OR THREE TIMES A DAY
     Route: 055

REACTIONS (7)
  - BLOOD MAGNESIUM INCREASED [None]
  - HEADACHE [None]
  - INSOMNIA [None]
  - LACRIMATION INCREASED [None]
  - RESTLESS LEGS SYNDROME [None]
  - RHINORRHOEA [None]
  - SNEEZING [None]
